FAERS Safety Report 16480191 (Version 1)
Quarter: 2019Q2

REPORT INFORMATION
  Report Type: Report from Study
  Country: FR (occurrence: FR)
  Receive Date: 20190626
  Receipt Date: 20190626
  Transmission Date: 20190711
  Serious: Yes (Hospitalization, Other)
  Sender: FDA-Public Use
  Company Number: FR-INCYTE CORPORATION-2019IN006143

PATIENT

DRUGS (2)
  1. CORTANCYL [Concomitant]
     Active Substance: PREDNISONE
     Indication: PYREXIA
     Dosage: 15 MG, UNK
     Route: 048
     Dates: start: 20190507
  2. JAKAVI [Suspect]
     Active Substance: RUXOLITINIB
     Indication: MYELOFIBROSIS
     Dosage: 30 MG, UNK
     Route: 048
     Dates: start: 20190313

REACTIONS (2)
  - Anaemia [Recovering/Resolving]
  - Cytopenia [Unknown]

NARRATIVE: CASE EVENT DATE: 20190507
